FAERS Safety Report 14424439 (Version 4)
Quarter: 2018Q2

REPORT INFORMATION
  Report Type: Spontaneous
  Country: AR (occurrence: AR)
  Receive Date: 20180123
  Receipt Date: 20180525
  Transmission Date: 20180711
  Serious: Yes (Other)
  Sender: FDA-Public Use
  Company Number: AR-REGENERON PHARMACEUTICALS, INC.-2018-10341

PATIENT

DRUGS (5)
  1. EYLEA [Suspect]
     Active Substance: AFLIBERCEPT
     Dosage: LEFT EYE, ONCE
     Dates: start: 20180103, end: 20180103
  2. EYLEA [Suspect]
     Active Substance: AFLIBERCEPT
     Dosage: RIGHT EYE, ONCE
     Dates: start: 20171121, end: 20171121
  3. EYLEA [Suspect]
     Active Substance: AFLIBERCEPT
     Indication: PRODUCT USED FOR UNKNOWN INDICATION
     Dosage: UNK
     Dates: start: 20170911
  4. ASPIRINETAS [Concomitant]
     Active Substance: ASPIRIN
     Indication: PRODUCT USED FOR UNKNOWN INDICATION
     Dosage: 100 MG, UNK
  5. EYLEA [Suspect]
     Active Substance: AFLIBERCEPT
     Dosage: LEFT EYE, ONCE
     Dates: start: 20171115, end: 20171115

REACTIONS (7)
  - Corneal disorder [Recovered/Resolved]
  - Corneal disorder [Recovered/Resolved]
  - Anterior chamber flare [Recovered/Resolved]
  - Corneal disorder [Recovered/Resolved]
  - Uveitis [Unknown]
  - Anterior chamber flare [Recovered/Resolved]
  - Anterior chamber flare [Recovered/Resolved]

NARRATIVE: CASE EVENT DATE: 20171017
